FAERS Safety Report 16259837 (Version 1)
Quarter: 2019Q2

REPORT INFORMATION
  Report Type: Spontaneous
  Country: GB (occurrence: GB)
  Receive Date: 20190501
  Receipt Date: 20190501
  Transmission Date: 20190711
  Serious: Yes (Disabling)
  Sender: FDA-Public Use
  Company Number: GB-TEVA-2019-GB-1045041

PATIENT
  Age: 58 Year
  Sex: Female

DRUGS (2)
  1. ENTONOX [Suspect]
     Active Substance: NITROUS OXIDE\OXYGEN
     Indication: ANALGESIC THERAPY
     Dosage: PATIENT CONTROLLED
     Route: 050
     Dates: start: 20190320, end: 20190320
  2. LIDOCAINE. [Suspect]
     Active Substance: LIDOCAINE
     Indication: LOCAL ANAESTHESIA
     Dates: start: 20190320, end: 20190320

REACTIONS (1)
  - Amnesia [Recovered/Resolved]

NARRATIVE: CASE EVENT DATE: 20190320
